FAERS Safety Report 24744212 (Version 1)
Quarter: 2024Q4

REPORT INFORMATION
  Report Type: Spontaneous
  Country: US (occurrence: None)
  Receive Date: 20241216
  Receipt Date: 20241216
  Transmission Date: 20250115
  Serious: No
  Sender: Public
  Company Number: None

PATIENT
  Age: 78 Year
  Sex: Male
  Weight: 106 kg

DRUGS (2)
  1. SULFAMETHOXAZOLE\TRIMETHOPRIM [Suspect]
     Active Substance: SULFAMETHOXAZOLE\TRIMETHOPRIM
     Route: 048
     Dates: start: 20241125, end: 20241126
  2. DIGOXIN [Suspect]
     Active Substance: DIGOXIN
     Dosage: FREQUENCY : DAILY;?
     Route: 048

REACTIONS (6)
  - Palpitations [None]
  - Palpitations [None]
  - Nausea [None]
  - Drug interaction [None]
  - Vomiting [None]
  - Dizziness [None]

NARRATIVE: CASE EVENT DATE: 20241126
